FAERS Safety Report 8104065-5 (Version None)
Quarter: 2012Q1

REPORT INFORMATION
  Report Type: 
  Country: None (occurrence: None)
  Receive Date: 20120201
  Receipt Date: 20120126
  Transmission Date: 20120608
  Serious: No
  Sender: FDA-Public Use
  Company Number: US-PFIZER INC-2012022266

PATIENT
  Sex: Female
  Weight: 72.562 kg

DRUGS (10)
  1. ACETAMINOPHEN [Concomitant]
     Indication: PAIN
     Dosage: UNK
  2. FLECTOR [Concomitant]
     Dosage: UNK
  3. SYNTHROID [Concomitant]
     Indication: HYPOTHYROIDISM
     Dosage: UNK
  4. NEXIUM [Concomitant]
     Indication: GASTROOESOPHAGEAL REFLUX DISEASE
     Dosage: UNK
  5. MELOXICAM [Concomitant]
     Dosage: 15 MG, UNK
  6. CITALOPRAM [Concomitant]
     Dosage: UNK
  7. TOVIAZ [Suspect]
     Indication: HYPERTONIC BLADDER
     Dosage: 4 MG, 1X/DAY
     Route: 048
     Dates: start: 20120110
  8. CODEINE [Concomitant]
     Indication: PAIN
     Dosage: UNK
  9. CALCITONIN [Concomitant]
     Indication: CALCIUM DEFICIENCY
     Dosage: UNK
  10. POLYETHYLENE GLYCOL [Concomitant]
     Dosage: UNK

REACTIONS (1)
  - DRUG INEFFECTIVE [None]
